FAERS Safety Report 11440941 (Version 1)
Quarter: 2015Q3

REPORT INFORMATION
  Report Type: Spontaneous
  Country: US (occurrence: None)
  Receive Date: 20150831
  Receipt Date: 20150831
  Transmission Date: 20151125
  Serious: Yes (Hospitalization)
  Sender: FDA-Public Use
  Company Number: None

PATIENT
  Age: 8 Year
  Sex: Female
  Weight: 38.7 kg

DRUGS (2)
  1. FLUDARABINE PHOSPHATE. [Suspect]
     Active Substance: FLUDARABINE PHOSPHATE
     Dates: end: 20150614
  2. BUSULFAN [Suspect]
     Active Substance: BUSULFAN
     Dates: end: 20150615

REACTIONS (7)
  - Cystitis haemorrhagic [None]
  - Atelectasis [None]
  - Respiratory distress [None]
  - Tachypnoea [None]
  - BK virus infection [None]
  - Chest pain [None]
  - Cough [None]

NARRATIVE: CASE EVENT DATE: 20150805
